FAERS Safety Report 20839113 (Version 2)
Quarter: 2022Q2

REPORT INFORMATION
  Report Type: Spontaneous
  Country: DE (occurrence: DE)
  Receive Date: 20220517
  Receipt Date: 20220525
  Transmission Date: 20220721
  Serious: No
  Sender: FDA-Public Use
  Company Number: DE-NOVARTISPH-NVSC2022DE112933

PATIENT
  Sex: Female

DRUGS (1)
  1. LEQVIO [Suspect]
     Active Substance: INCLISIRAN SODIUM
     Indication: Type IIa hyperlipidaemia
     Dosage: UNK
     Route: 065
     Dates: start: 202203

REACTIONS (7)
  - Renal disorder [Unknown]
  - Diarrhoea [Unknown]
  - Rash [Unknown]
  - Blood triglycerides abnormal [Unknown]
  - Low density lipoprotein abnormal [Unknown]
  - Blood cholesterol abnormal [Unknown]
  - Nausea [Unknown]
